FAERS Safety Report 22189329 (Version 2)
Quarter: 2023Q2

REPORT INFORMATION
  Report Type: Report from Study
  Country: US (occurrence: US)
  Receive Date: 20230410
  Receipt Date: 20230427
  Transmission Date: 20230721
  Serious: No
  Sender: FDA-Public Use
  Company Number: US-GBT-021477

PATIENT
  Age: 18 Year
  Sex: Male

DRUGS (5)
  1. OXBRYTA [Suspect]
     Active Substance: VOXELOTOR
     Indication: Sickle cell disease
     Dates: start: 20210311, end: 202108
  2. HYDROXYUREA [Concomitant]
     Active Substance: HYDROXYUREA
     Indication: Sickle cell disease
     Route: 048
     Dates: start: 20190113
  3. HYDROCODONE [Concomitant]
     Active Substance: HYDROCODONE
     Indication: Sickle cell disease
     Dosage: 5-10 MG Q6 HRS PRN
     Route: 048
     Dates: start: 20201022, end: 20221018
  4. ACETAMINOPHEN [Concomitant]
     Active Substance: ACETAMINOPHEN
     Dates: start: 202108
  5. OXYCODONE [Concomitant]
     Active Substance: OXYCODONE
     Indication: Sickle cell disease
     Dosage: 10-20 MG Q4HRS
     Route: 048
     Dates: start: 20221201

REACTIONS (1)
  - Headache [Recovered/Resolved]

NARRATIVE: CASE EVENT DATE: 20210811
